FAERS Safety Report 5115007-9 (Version None)
Quarter: 2006Q3

REPORT INFORMATION
  Report Type: 
  Country: None (occurrence: None)
  Receive Date: 20060925
  Receipt Date: 20060925
  Transmission Date: 20061208
  Serious: Yes (Hospitalization)
  Sender: FDA-Public Use
  Company Number: None

PATIENT
  Sex: Male

DRUGS (2)
  1. TRAMADOL HCL [Suspect]
     Indication: PAIN
     Dosage: 50-100 MG Q 6H PO
     Route: 048
  2. TRAMADOL HCL [Suspect]
     Indication: SURGERY
     Dosage: 50-100 MG Q 6H PO
     Route: 048

REACTIONS (7)
  - ANOREXIA [None]
  - CONVULSION [None]
  - FALL [None]
  - GAIT DISTURBANCE [None]
  - MOVEMENT DISORDER [None]
  - NASAL CONGESTION [None]
  - NAUSEA [None]
